FAERS Safety Report 6238224-3 (Version None)
Quarter: 2009Q2

REPORT INFORMATION
  Report Type: 
  Country: None (occurrence: None)
  Receive Date: 20090618
  Receipt Date: 20090604
  Transmission Date: 20091009
  Serious: Yes (Other)
  Sender: FDA-Public Use
  Company Number: ADE2009-0656

PATIENT
  Age: 83 Year
  Sex: Female

DRUGS (4)
  1. LISINOPRIL [Suspect]
     Indication: HYPERTENSION
  2. LATANOPROST [Suspect]
     Indication: EYE PAIN
     Dosage: 1 DROP - DAILY - TOPICAL
     Route: 061
  3. LEVOTHYROXINE SODIUM [Concomitant]
  4. LORAZEPAM [Concomitant]

REACTIONS (4)
  - COUGH [None]
  - EYE IRRITATION [None]
  - GLAUCOMA [None]
  - THROAT IRRITATION [None]
